FAERS Safety Report 17581440 (Version 2)
Quarter: 2020Q4

REPORT INFORMATION
  Report Type: Report from Study
  Country: US (occurrence: US)
  Receive Date: 20200325
  Receipt Date: 20201110
  Transmission Date: 20210113
  Serious: Yes (Other)
  Sender: FDA-Public Use
  Company Number: NVSC2020US083743

PATIENT
  Sex: Female

DRUGS (3)
  1. FLUDARABINE [Concomitant]
     Active Substance: FLUDARABINE PHOSPHATE
     Indication: CHEMOTHERAPY
     Dosage: UNK
     Route: 065
  2. KYMRIAH [Suspect]
     Active Substance: TISAGENLECLEUCEL
     Indication: LYMPHOCYTIC LEUKAEMIA
     Dosage: ONCE/SINGLE
     Route: 041
     Dates: start: 20200219
  3. CYCLOPHOSPHAMIDE. [Concomitant]
     Active Substance: CYCLOPHOSPHAMIDE
     Indication: CHEMOTHERAPY
     Dosage: UNK
     Route: 065

REACTIONS (10)
  - Blood potassium decreased [Unknown]
  - Hypotension [Unknown]
  - Recurrent cancer [Unknown]
  - Cytokine release syndrome [Recovered/Resolved]
  - Hypoxia [Unknown]
  - Cytopenia [Unknown]
  - B-cell type acute leukaemia [Unknown]
  - Pyrexia [Unknown]
  - Vitamin K decreased [Unknown]
  - Bacterial infection [Unknown]
